FAERS Safety Report 12674452 (Version 1)
Quarter: 2016Q3

REPORT INFORMATION
  Report Type: Spontaneous
  Country: US (occurrence: US)
  Receive Date: 20160822
  Receipt Date: 20160822
  Transmission Date: 20161109
  Serious: No
  Sender: FDA-Public Use
  Company Number: US-BEH-2016060211

PATIENT
  Age: 59 Year
  Sex: Female
  Weight: 95.26 kg

DRUGS (23)
  1. OXYCODONE [Concomitant]
     Active Substance: OXYCODONE
  2. TRIAMCINOLONE [Concomitant]
     Active Substance: TRIAMCINOLONE
  3. CALTRATE WITH VIT D [Concomitant]
  4. REWETTING DROPS [Concomitant]
  5. AMBIEN [Concomitant]
     Active Substance: ZOLPIDEM TARTRATE
  6. CLONAZEPAM. [Concomitant]
     Active Substance: CLONAZEPAM
  7. TENORMIN [Concomitant]
     Active Substance: ATENOLOL
  8. ZEMAIRA [Suspect]
     Active Substance: .ALPHA.1-PROTEINASE INHIBITOR HUMAN
     Indication: ALPHA-1 ANTI-TRYPSIN DEFICIENCY
     Route: 042
  9. SYNTHROID [Concomitant]
     Active Substance: LEVOTHYROXINE SODIUM
  10. TUMS [Concomitant]
     Active Substance: CALCIUM CARBONATE
  11. DIPHENHYDRAMINE. [Concomitant]
     Active Substance: DIPHENHYDRAMINE
  12. OMEPRAZOLE. [Concomitant]
     Active Substance: OMEPRAZOLE
  13. DEXILANT DR [Concomitant]
  14. SYMBICORT [Concomitant]
     Active Substance: BUDESONIDE\FORMOTEROL FUMARATE DIHYDRATE
  15. MULTIVITAMINS [Concomitant]
     Active Substance: VITAMINS
  16. FISH OIL [Concomitant]
     Active Substance: FISH OIL
  17. PROBIOTIC [Concomitant]
     Active Substance: PROBIOTICS NOS
  18. DOXYCYCLINE. [Concomitant]
     Active Substance: DOXYCYCLINE
  19. EPIPEN [Concomitant]
     Active Substance: EPINEPHRINE
  20. LMX [Concomitant]
     Active Substance: LIDOCAINE
  21. BACTROBAN [Concomitant]
     Active Substance: MUPIROCIN\MUPIROCIN CALCIUM
  22. SODIUM CHLORIDE. [Concomitant]
     Active Substance: SODIUM CHLORIDE
  23. NORVASC [Concomitant]
     Active Substance: AMLODIPINE BESYLATE

REACTIONS (4)
  - Blood thyroid stimulating hormone decreased [Unknown]
  - Blood potassium increased [Unknown]
  - Fatigue [Unknown]
  - Back pain [Unknown]

NARRATIVE: CASE EVENT DATE: 201512
